FAERS Safety Report 7346083-0 (Version None)
Quarter: 2011Q1

REPORT INFORMATION
  Report Type: 
  Country: None (occurrence: None)
  Receive Date: 20110311
  Receipt Date: 20110224
  Transmission Date: 20110831
  Serious: Yes (Other)
  Sender: FDA-Public Use
  Company Number: US-BAYER-201031621NA

PATIENT
  Sex: Female
  Weight: 117.91 kg

DRUGS (8)
  1. PRAVASTATIN [Concomitant]
     Indication: BLOOD CHOLESTEROL INCREASED
     Dosage: UNK
     Dates: start: 20090101
  2. NAPROXEN [Concomitant]
     Dosage: UNK UNK, PRN
  3. HYDROCHLOROTHIAZIDE [Concomitant]
     Indication: BLOOD PRESSURE INCREASED
     Dosage: 25 MG, QD
     Dates: start: 20060101
  4. YAZ [Suspect]
     Indication: CONTRACEPTION
     Dosage: 1 DF, QD
     Dates: start: 20070402, end: 20090905
  5. YASMIN [Suspect]
     Dosage: UNK
     Dates: start: 20070402, end: 20090905
  6. ZYRTEC [Concomitant]
     Dosage: UNK, PRN
  7. YASMIN [Suspect]
     Indication: CONTRACEPTION
     Dosage: 1 DF, QD
     Route: 048
     Dates: start: 20050122, end: 20061117
  8. ANTI-ASTHMATICS [Concomitant]
     Dosage: UNK UNK, PRN

REACTIONS (6)
  - ABDOMINAL DISTENSION [None]
  - ABDOMINAL PAIN UPPER [None]
  - CHOLELITHIASIS [None]
  - CHOLECYSTITIS [None]
  - NAUSEA [None]
  - BACK PAIN [None]
